FAERS Safety Report 5930660-5 (Version None)
Quarter: 2008Q4

REPORT INFORMATION
  Report Type: 
  Country: None (occurrence: None)
  Receive Date: 20081027
  Receipt Date: 20081021
  Transmission Date: 20090506
  Serious: Yes (Other)
  Sender: FDA-Public Use
  Company Number: CN-BAYER-200828201GPV

PATIENT
  Age: 46 Year
  Sex: Male

DRUGS (1)
  1. NEXAVAR [Suspect]
     Indication: HEPATIC NEOPLASM MALIGNANT
     Dosage: TOTAL DAILY DOSE: 800 MG
     Route: 048
     Dates: start: 20080919, end: 20080929

REACTIONS (5)
  - COMA HEPATIC [None]
  - DISTURBANCE IN ATTENTION [None]
  - GASTROINTESTINAL HAEMORRHAGE [None]
  - LETHARGY [None]
  - TREMOR [None]
